FAERS Safety Report 10067824 (Version 1)
Quarter: 2014Q2

REPORT INFORMATION
  Report Type: Spontaneous
  Country: US (occurrence: None)
  Receive Date: 20140407
  Receipt Date: 20140407
  Transmission Date: 20141212
  Serious: Yes (Hospitalization)
  Sender: FDA-Public Use
  Company Number: 2014AP002333

PATIENT
  Age: 55 Year
  Sex: Female

DRUGS (1)
  1. IBANDRONATE SODIUM [Suspect]

REACTIONS (5)
  - Ventricular arrhythmia [None]
  - Syncope [None]
  - Hypokalaemia [None]
  - Electrocardiogram QT prolonged [None]
  - Blood potassium decreased [None]
